FAERS Safety Report 20968236 (Version 2)
Quarter: 2022Q3

REPORT INFORMATION
  Report Type: Report from Study
  Country: EG (occurrence: EG)
  Receive Date: 20220616
  Receipt Date: 20220828
  Transmission Date: 20221026
  Serious: Yes (Other)
  Sender: FDA-Public Use
  Company Number: EG-NOVARTISPH-NVSC2022EG133570

PATIENT
  Age: 41 Year
  Sex: Female

DRUGS (5)
  1. AFINITOR [Suspect]
     Active Substance: EVEROLIMUS
     Indication: Breast cancer metastatic
     Dosage: 5 MG, BID
     Route: 065
     Dates: start: 20220212, end: 20220515
  2. AFINITOR [Suspect]
     Active Substance: EVEROLIMUS
     Indication: Metastases to bone
     Dosage: 10 MG, BID, (FOR 3 MONTHS) (ONE TABLET IN THE MORNING AND 1 TABLET IN THE NIGHT)
     Route: 065
     Dates: start: 20220515, end: 20220814
  3. AFINITOR [Suspect]
     Active Substance: EVEROLIMUS
     Indication: Metastases to liver
  4. AFINITOR [Suspect]
     Active Substance: EVEROLIMUS
     Indication: Metastases to lung
  5. AFINITOR [Suspect]
     Active Substance: EVEROLIMUS
     Indication: Metastases to lymph nodes

REACTIONS (10)
  - Bone lesion [Recovering/Resolving]
  - Pain [Recovering/Resolving]
  - Movement disorder [Recovering/Resolving]
  - Metastases to lymph nodes [Not Recovered/Not Resolved]
  - Liver function test increased [Unknown]
  - Anaemia [Unknown]
  - Pelvic neoplasm [Unknown]
  - Drug resistance [Recovered/Resolved]
  - Drug ineffective [Recovered/Resolved]
  - Inappropriate schedule of product administration [Not Recovered/Not Resolved]

NARRATIVE: CASE EVENT DATE: 20220511
